FAERS Safety Report 8248341 (Version 7)
Quarter: 2015Q4

REPORT INFORMATION
  Report Type: Spontaneous
  Country: CA (occurrence: CA)
  Receive Date: 20111117
  Receipt Date: 20151022
  Transmission Date: 20160305
  Serious: Yes (Hospitalization)
  Sender: FDA-Public Use
  Company Number: CA-JNJFOC-20111103101

PATIENT
  Age: 66 Year
  Sex: Female
  Weight: 70 kg

DRUGS (5)
  1. REMICADE [Suspect]
     Active Substance: INFLIXIMAB
     Indication: RHEUMATOID ARTHRITIS
     Route: 042
     Dates: start: 20081218
  2. METHOTREXATE [Concomitant]
     Active Substance: METHOTREXATE
     Route: 065
  3. REMICADE [Suspect]
     Active Substance: INFLIXIMAB
     Indication: RHEUMATIC DISORDER
     Route: 042
     Dates: start: 20081218
  4. REMICADE [Suspect]
     Active Substance: INFLIXIMAB
     Indication: RHEUMATOID ARTHRITIS
     Route: 042
     Dates: end: 20110315
  5. REMICADE [Suspect]
     Active Substance: INFLIXIMAB
     Indication: RHEUMATIC DISORDER
     Route: 042
     Dates: end: 20110315

REACTIONS (11)
  - Rheumatoid arthritis [Not Recovered/Not Resolved]
  - Sepsis [Recovered/Resolved]
  - Arthritis bacterial [Recovered/Resolved]
  - Dysphagia [Unknown]
  - Arthritis bacterial [Recovered/Resolved]
  - Staphylococcal infection [Recovered/Resolved]
  - Skin ulcer [Recovered/Resolved]
  - Subcutaneous abscess [Recovered/Resolved]
  - Osteomyelitis [Recovered/Resolved]
  - Arthropathy [Unknown]
  - Septic shock [Recovered/Resolved]

NARRATIVE: CASE EVENT DATE: 20100203
